FAERS Safety Report 5502778-2 (Version None)
Quarter: 2007Q4

REPORT INFORMATION
  Report Type: 
  Country: None (occurrence: None)
  Receive Date: 20071029
  Receipt Date: 20071023
  Transmission Date: 20080405
  Serious: Yes (Death, Hospitalization)
  Sender: FDA-Public Use
  Company Number: 163-21880-07101398

PATIENT
  Age: 59 Year
  Sex: Female

DRUGS (2)
  1. REVLIMID [Suspect]
     Indication: MULTIPLE MYELOMA
     Dosage: 10 MG, QD, ORAL
     Route: 048
     Dates: start: 20060901, end: 20070829
  2. DOXIL [Concomitant]

REACTIONS (4)
  - DISEASE PROGRESSION [None]
  - INFECTION [None]
  - MULTIPLE MYELOMA [None]
  - PLATELET COUNT DECREASED [None]
